FAERS Safety Report 13002161 (Version 2)
Quarter: 2016Q4

REPORT INFORMATION
  Report Type: Spontaneous
  Country: US (occurrence: US)
  Receive Date: 20161206
  Receipt Date: 20161223
  Transmission Date: 20170207
  Serious: Yes (Hospitalization, Other)
  Sender: FDA-Public Use
  Company Number: US-GLAXOSMITHKLINE-US2016179143

PATIENT
  Age: 87 Year
  Sex: Female

DRUGS (4)
  1. ASPIRIN (BABY) [Concomitant]
     Active Substance: ASPIRIN
  2. LEXAPRO [Concomitant]
     Active Substance: ESCITALOPRAM OXALATE
  3. COREG CR [Suspect]
     Active Substance: CARVEDILOL PHOSPHATE
     Indication: PRODUCT USED FOR UNKNOWN INDICATION
     Dosage: 80 MG, QD
     Route: 048
     Dates: start: 201609
  4. PRILOSEC [Concomitant]
     Active Substance: OMEPRAZOLE MAGNESIUM

REACTIONS (9)
  - Dementia [Not Recovered/Not Resolved]
  - Syncope [Unknown]
  - Fall [Unknown]
  - Memory impairment [Unknown]
  - Gait disturbance [Unknown]
  - Product quality issue [Unknown]
  - Head injury [Recovered/Resolved]
  - Blood pressure increased [Not Recovered/Not Resolved]
  - Suture insertion [Unknown]

NARRATIVE: CASE EVENT DATE: 20160902
